FAERS Safety Report 6343037-8 (Version None)
Quarter: 2009Q3

REPORT INFORMATION
  Report Type: 
  Country: None (occurrence: None)
  Receive Date: 20090903
  Receipt Date: 20090820
  Transmission Date: 20100115
  Serious: Yes (Other)
  Sender: FDA-Public Use
  Company Number: 20090366

PATIENT
  Age: 17 Year
  Sex: Female
  Weight: 63.8 kg

DRUGS (2)
  1. VENOFER [Suspect]
     Dosage: 400 MG IN 250 ML NS
     Dates: start: 20090709, end: 20090709
  2. YASMIN R8 [Concomitant]

REACTIONS (2)
  - INJECTION SITE PAIN [None]
  - URTICARIA [None]
